FAERS Safety Report 21626830 (Version 1)
Quarter: 2022Q4

REPORT INFORMATION
  Report Type: Spontaneous
  Country: US (occurrence: None)
  Receive Date: 20221122
  Receipt Date: 20221122
  Transmission Date: 20230113
  Serious: No
  Sender: FDA-Public Use
  Company Number: US-ROCHE-3156134

PATIENT
  Age: 9 Year

DRUGS (1)
  1. EVRYSDI [Suspect]
     Active Substance: RISDIPLAM
     Indication: Spinal muscular atrophy
     Dosage: DAILY, ORAL MEDICATION
     Route: 048
     Dates: start: 20200520

REACTIONS (1)
  - Photosensitivity reaction [Unknown]

NARRATIVE: CASE EVENT DATE: 20220720
